FAERS Safety Report 5063045-7 (Version None)
Quarter: 2006Q3

REPORT INFORMATION
  Report Type: 
  Country: None (occurrence: None)
  Receive Date: 20060727
  Receipt Date: 20060717
  Transmission Date: 20061208
  Serious: Yes (Other)
  Sender: FDA-Public Use
  Company Number: GBWYE264219JUL06

PATIENT
  Age: 12 Year
  Sex: Female

DRUGS (4)
  1. ENBREL [Suspect]
     Indication: DRUG USE FOR UNKNOWN INDICATION
     Route: 058
     Dates: start: 20050808
  2. METHOTREXATE [Suspect]
     Route: 058
     Dates: start: 20040901
  3. IBUPROFEN [Concomitant]
     Dates: start: 20040901
  4. DOCUSATE SODIUM [Concomitant]
     Dates: start: 20050808

REACTIONS (1)
  - ALANINE AMINOTRANSFERASE INCREASED [None]
